FAERS Safety Report 7764283-2 (Version None)
Quarter: 2011Q3

REPORT INFORMATION
  Report Type: 
  Country: None (occurrence: None)
  Receive Date: 20110921
  Receipt Date: 20110909
  Transmission Date: 20111222
  Serious: Yes (Other)
  Sender: FDA-Public Use
  Company Number: US-ELI_LILLY_AND_COMPANY-US201107004918

PATIENT
  Sex: Female
  Weight: 55 kg

DRUGS (34)
  1. GLUCOSAMINE + CHONDROITIN [Concomitant]
     Dosage: UNK, QD
     Route: 048
  2. RECLAST [Concomitant]
  3. VITAMIN D [Concomitant]
     Indication: OSTEOPOROSIS
     Dosage: 2 DF, QD
     Route: 048
  4. MELATONIN [Concomitant]
     Indication: SUPPLEMENTATION THERAPY
     Dosage: 2 DF, PRN
     Route: 048
  5. PROVENTIL                          /00139502/ [Concomitant]
     Dosage: 2 DF, PRN FREQUENT USED IN SUMMER
  6. FLAXSEED OIL [Concomitant]
     Dosage: 1 DF, BID
     Route: 048
  7. FORTEO [Suspect]
     Dosage: 20 UG, QD
  8. CALAN [Concomitant]
     Indication: ADRENAL DISORDER
     Dosage: 80 MG, TID
     Route: 048
  9. CALCIUM CARBONATE [Concomitant]
  10. VITAMIN D [Concomitant]
  11. CALCIUM CARBONATE + VITAMIN D [Concomitant]
     Indication: ADRENAL DISORDER
     Dosage: 1 DF, BID
     Route: 048
  12. ZINC [Concomitant]
     Dosage: 2 DF, QD
  13. DIOVAN [Concomitant]
     Indication: ADRENAL DISORDER
     Dosage: 1 DF, QD
     Route: 048
  14. ZANTAC [Concomitant]
     Dosage: 1 DF, PRN
     Route: 048
  15. XANACINE [Concomitant]
     Dosage: 1 DF, TID
     Route: 048
  16. PHENERGAN HCL [Concomitant]
     Dosage: 1 DF, PRN
  17. ACETAMINOPHEN [Concomitant]
     Dosage: 2 DF, PRN
     Route: 048
  18. CARAFATE [Concomitant]
     Dosage: 1 DF, TID
     Route: 048
  19. FORTEO [Suspect]
     Indication: OSTEOPOROSIS
     Dosage: 20 UG, QD
     Dates: start: 20060101, end: 20080101
  20. PULMICORT [Concomitant]
     Dosage: 4 DF, BID
  21. SEREVENT [Concomitant]
     Dosage: 1 DF, BID
  22. HYDROCORTISONE [Concomitant]
     Indication: ADRENAL DISORDER
     Dosage: 2 DF, BID
     Route: 048
     Dates: start: 19930101
  23. PERCOCET [Concomitant]
     Indication: PAIN
     Dosage: 1 DF, PRN
     Route: 048
  24. ATROVENT [Concomitant]
     Dosage: UNK, PRN
  25. ALLEGRA [Concomitant]
     Dosage: 60 MG, QD
     Route: 048
  26. FOLTX [Concomitant]
     Dosage: 1 DF, BID
     Route: 048
  27. VOLTAREN [Concomitant]
     Indication: MUSCULOSKELETAL DISCOMFORT
     Dosage: 1 DF, EVERY 6 HRS
     Route: 061
  28. MYCELEX [Concomitant]
  29. ASCORBIC ACID [Concomitant]
     Dosage: 1 DF, QD
  30. FIBER [Concomitant]
     Indication: SUPPLEMENTATION THERAPY
  31. KAPIDEX [Concomitant]
     Dosage: 1 DF, QD
     Route: 048
  32. VITAMIN E [Concomitant]
     Dosage: 1 DF, QD
     Route: 048
  33. MS CONTIN [Concomitant]
     Dosage: 1 DF, TID
     Route: 048
  34. ALBUTEROL [Concomitant]

REACTIONS (13)
  - POSTMENOPAUSAL HAEMORRHAGE [None]
  - DYSPHONIA [None]
  - DELAYED RECOVERY FROM ANAESTHESIA [None]
  - MUSCLE SPASMS [None]
  - MULTIPLE FRACTURES [None]
  - APHONIA [None]
  - FALL [None]
  - ACCIDENT [None]
  - FOOT FRACTURE [None]
  - SOMNOLENCE [None]
  - GAIT DISTURBANCE [None]
  - HIP FRACTURE [None]
  - POOR QUALITY SLEEP [None]
